FAERS Safety Report 11883227 (Version 4)
Quarter: 2016Q2

REPORT INFORMATION
  Report Type: Spontaneous
  Country: US (occurrence: US)
  Receive Date: 20151231
  Receipt Date: 20160504
  Transmission Date: 20160815
  Serious: Yes (Hospitalization, Other)
  Sender: FDA-Public Use
  Company Number: US-SMITH AND NEPHEW, INC-2015SMT00687

PATIENT
  Age: 73 Year
  Sex: Male
  Weight: 66.21 kg

DRUGS (6)
  1. REGRANEX [Suspect]
     Active Substance: BECAPLERMIN
     Indication: WOUND
     Dosage: UNK, 1X/DAY
     Route: 061
     Dates: start: 20151010, end: 20151028
  2. UNSPECIFIED SUPPLEMENT(S) [Concomitant]
     Dosage: UNK, 1X/DAY
  3. GLUCOSAMINE [Concomitant]
     Active Substance: GLUCOSAMINE
  4. MULTIVITAMIN [Concomitant]
     Active Substance: VITAMINS
  5. OMEGA 3 [Concomitant]
     Active Substance: OMEGA-3 FATTY ACIDS
  6. METFORMIN [Concomitant]
     Active Substance: METFORMIN HYDROCHLORIDE
     Dosage: 500 MG, 2X/DAY

REACTIONS (15)
  - Malaise [Unknown]
  - Application site abscess [Unknown]
  - Streptococcus test positive [Unknown]
  - Acute kidney injury [Recovered/Resolved]
  - Application site infection [Recovered/Resolved]
  - Pneumonia aspiration [Unknown]
  - Asthenia [Unknown]
  - Toe amputation [Recovered/Resolved with Sequelae]
  - Gait disturbance [Unknown]
  - Osteomyelitis [Recovered/Resolved with Sequelae]
  - Cellulitis [Recovered/Resolved with Sequelae]
  - Drug ineffective [Unknown]
  - Fatigue [Unknown]
  - Benign prostatic hyperplasia [Unknown]
  - Dysphagia [Unknown]

NARRATIVE: CASE EVENT DATE: 2015
